FAERS Safety Report 19118784 (Version 2)
Quarter: 2021Q2

REPORT INFORMATION
  Report Type: Spontaneous
  Country: PL (occurrence: PL)
  Receive Date: 20210409
  Receipt Date: 20210421
  Transmission Date: 20210717
  Serious: Yes (Other)
  Sender: FDA-Public Use
  Company Number: PL-B.I. PHARMACEUTICALS,INC./RIDGEFIELD-2021-BI-094945

PATIENT
  Age: 56 Year
  Sex: Female

DRUGS (3)
  1. VARGATEF [Suspect]
     Active Substance: NINTEDANIB
     Indication: PRODUCT USED FOR UNKNOWN INDICATION
     Route: 065
     Dates: start: 20200602, end: 20200723
  2. DOCETAXEL. [Concomitant]
     Active Substance: DOCETAXEL
     Indication: PRODUCT USED FOR UNKNOWN INDICATION
     Route: 065
     Dates: start: 20200602, end: 20200723
  3. VARGATEF [Suspect]
     Active Substance: NINTEDANIB
     Dates: start: 20200813, end: 20200924

REACTIONS (9)
  - Diarrhoea [Unknown]
  - Cerebral atrophy [Unknown]
  - Decreased appetite [Unknown]
  - Memory impairment [Unknown]
  - Dizziness [Unknown]
  - Gait disturbance [Unknown]
  - Cancer fatigue [Unknown]
  - Metastases to central nervous system [Unknown]
  - Asthenia [Unknown]
